FAERS Safety Report 13497057 (Version 1)
Quarter: 2017Q2

REPORT INFORMATION
  Report Type: Spontaneous
  Country: CH (occurrence: CH)
  Receive Date: 20170428
  Receipt Date: 20170428
  Transmission Date: 20170830
  Serious: Yes (Death)
  Sender: FDA-Public Use
  Company Number: CH-PFIZER INC-2017182586

PATIENT
  Age: 61 Year
  Sex: Female
  Weight: 48 kg

DRUGS (6)
  1. SURMONTIL [Suspect]
     Active Substance: TRIMIPRAMINE MALEATE
     Dosage: 10 MG, 1X/DAY (IN RESERVE))
     Dates: start: 20160225, end: 20160226
  2. CO-AMOXI [Concomitant]
     Active Substance: AMOXICILLIN\CLAVULANATE POTASSIUM
     Dosage: 2 G, 1X/DAY
     Dates: start: 20160226, end: 20160228
  3. LACRYCON /02211501/ [Concomitant]
     Dosage: UNK
     Dates: start: 20160228
  4. TEMESTA [Suspect]
     Active Substance: LORAZEPAM
     Dosage: 0.5 MG, 4X/DAY (ALSO REPORTED AS 1-1.5 MG/DAY)
     Dates: start: 20160225, end: 20160228
  5. REDORMIN /01229902/ [Concomitant]
     Dosage: 1 G, 1X/DAY
     Dates: start: 20160224, end: 20160227
  6. ZYPREXA [Suspect]
     Active Substance: OLANZAPINE
     Dosage: 2.5 MG, 1X/DAY
     Dates: start: 20160226, end: 20160227

REACTIONS (2)
  - Suicidal ideation [Fatal]
  - Completed suicide [Fatal]

NARRATIVE: CASE EVENT DATE: 201602
